FAERS Safety Report 8496545 (Version 4)
Quarter: 2015Q1

REPORT INFORMATION
  Report Type: Spontaneous
  Country: JP (occurrence: JP)
  Receive Date: 20120405
  Receipt Date: 20150325
  Transmission Date: 20150721
  Serious: Yes (Other)
  Sender: FDA-Public Use
  Company Number: JP-PFIZER INC-2012083343

PATIENT
  Age: 63 Year
  Sex: Male
  Weight: 68.8 kg

DRUGS (20)
  1. PARIET [Concomitant]
     Active Substance: RABEPRAZOLE SODIUM
     Dosage: UNK
  2. LASIX [Concomitant]
     Active Substance: FUROSEMIDE
     Dosage: UNK
  3. GENTAMICIN SULFATE. [Concomitant]
     Active Substance: GENTAMICIN SULFATE
     Indication: ENDOCARDITIS
     Dosage: 60 MG, 2X/DAY
     Route: 041
     Dates: start: 20111009, end: 20111011
  4. SIGMART [Concomitant]
     Active Substance: NICORANDIL
     Dosage: UNK
     Route: 048
     Dates: end: 20111207
  5. ALDACTONE [Concomitant]
     Active Substance: SPIRONOLACTONE
     Dosage: UNK
  6. LENDORMIN [Concomitant]
     Active Substance: BROTIZOLAM
     Dosage: UNK
  7. WARFARIN [Interacting]
     Active Substance: WARFARIN
     Indication: ENDOCARDITIS
     Dosage: UNK
     Route: 048
     Dates: start: 20110929, end: 20111210
  8. BAYASPIRIN [Concomitant]
     Active Substance: ASPIRIN
     Dosage: UNK
  9. BIOFERMIN R [Concomitant]
     Active Substance: BACILLUS SUBTILIS\LACTOBACILLUS ACIDOPHILUS\STREPTOCOCCUS FAECAIS
     Dosage: UNK
     Dates: start: 20111020, end: 20111202
  10. MIYA-BM [Concomitant]
     Active Substance: CLOSTRIDIUM BUTYRICUM SPORES STRAIN M-55
     Dosage: UNK
     Route: 048
     Dates: start: 20111020
  11. ZYVOX [Suspect]
     Active Substance: LINEZOLID
     Indication: ENDOCARDITIS
     Dosage: 600 MG, 2X/DAY
     Route: 041
     Dates: start: 20111011, end: 20111129
  12. RIFADIN [Suspect]
     Active Substance: RIFAMPIN
     Indication: ENDOCARDITIS
     Dosage: 600 MG, 1X/DAY
     Route: 048
     Dates: start: 20111014, end: 20111210
  13. MIYA-BM [Concomitant]
     Active Substance: CLOSTRIDIUM BUTYRICUM SPORES STRAIN M-55
     Dosage: UNK
     Route: 048
     Dates: end: 20111019
  14. GASLON [Concomitant]
     Active Substance: IRSOGLADINE MALEATE
     Dosage: UNK
     Dates: start: 20111112
  15. AVAPRO [Concomitant]
     Active Substance: IRBESARTAN
     Dosage: UNK
     Dates: start: 20111127
  16. HABEKACIN /01069402/ [Suspect]
     Active Substance: ARBEKACIN SULFATE
     Indication: ENDOCARDITIS
     Dosage: 200 MG, 1X/DAY
     Route: 041
     Dates: start: 20111014, end: 20111111
  17. CELOOP [Concomitant]
     Dosage: UNK
  18. VANCOMYCIN [Concomitant]
     Active Substance: VANCOMYCIN
     Indication: ENDOCARDITIS
     Dosage: 1 G, 2X/DAY
     Route: 041
     Dates: start: 20111009, end: 20111011
  19. MAGNESIUM OXIDE HEAVY [Concomitant]
     Active Substance: MAGNESIUM OXIDE
     Dosage: UNK
     Dates: end: 20111019
  20. NITOROL R [Concomitant]
     Dosage: UNK
     Dates: end: 20111207

REACTIONS (4)
  - Drug interaction [Recovered/Resolved]
  - Off label use [Unknown]
  - International normalised ratio increased [Recovered/Resolved]
  - Renal impairment [Unknown]

NARRATIVE: CASE EVENT DATE: 20111013
